FAERS Safety Report 10639225 (Version 2)
Quarter: 2014Q4

REPORT INFORMATION
  Report Type: Report from Study
  Country: CA (occurrence: CA)
  Receive Date: 20141208
  Receipt Date: 20141208
  Transmission Date: 20150529
  Serious: Yes (Other)
  Sender: FDA-Public Use
  Company Number: CA-ABBVIE-14K-028-1315390-00

PATIENT
  Sex: Male
  Weight: 51.76 kg

DRUGS (1)
  1. HUMIRA [Suspect]
     Active Substance: ADALIMUMAB
     Indication: CROHN^S DISEASE
     Route: 058
     Dates: start: 20141001

REACTIONS (2)
  - Nephrolithiasis [Unknown]
  - Nephritis [Not Recovered/Not Resolved]

NARRATIVE: CASE EVENT DATE: 2014
